FAERS Safety Report 19459994 (Version 1)
Quarter: 2021Q2

REPORT INFORMATION
  Report Type: Spontaneous
  Country: GB (occurrence: GB)
  Receive Date: 20210625
  Receipt Date: 20210625
  Transmission Date: 20210717
  Serious: Yes (Other)
  Sender: FDA-Public Use
  Company Number: GB-SUN PHARMACEUTICAL INDUSTRIES LTD-2021RR-302031

PATIENT
  Age: 54 Year
  Sex: Female

DRUGS (138)
  1. ACYCLOVIR. [Concomitant]
     Active Substance: ACYCLOVIR
     Indication: PRODUCT USED FOR UNKNOWN INDICATION
     Dosage: UNK
     Route: 061
     Dates: start: 20161213, end: 20161218
  2. BENZYLPENICILLIN [Concomitant]
     Active Substance: PENICILLIN G
     Indication: PRODUCT USED FOR UNKNOWN INDICATION
     Dosage: 1.2 GRAM, QID
     Route: 042
     Dates: start: 20180912, end: 20180915
  3. BLOOD, WHOLE [Concomitant]
     Active Substance: WHOLE BLOOD
     Dosage: 2 U
     Route: 042
     Dates: start: 20200622, end: 20200622
  4. CLARITHROMYCIN. [Concomitant]
     Active Substance: CLARITHROMYCIN
     Indication: PYREXIA
     Dosage: 500 MILLIGRAM, BID
     Route: 048
     Dates: start: 20201121, end: 20201127
  5. CLINDAMYCIN. [Concomitant]
     Active Substance: CLINDAMYCIN
     Indication: CELLULITIS
     Dosage: 1.2 GRAM, QID
     Route: 042
     Dates: start: 20190611, end: 20190621
  6. DENOSUMAB [Concomitant]
     Active Substance: DENOSUMAB
     Dosage: 120 MILLIGRAM, 1DOSE/ 6WEEKS
     Route: 058
     Dates: start: 20180118
  7. DEXAMETHASONE. [Concomitant]
     Active Substance: DEXAMETHASONE
     Dosage: 6 MILLIGRAM, 2 DOSE
     Route: 048
     Dates: start: 20201129, end: 20201208
  8. DOXYCYCLINE. [Concomitant]
     Active Substance: DOXYCYCLINE
     Indication: LOWER RESPIRATORY TRACT INFECTION
     Dosage: 100 MILLIGRAM, DAILY
     Route: 048
     Dates: start: 20180814, end: 20180814
  9. DIAZEPAM. [Concomitant]
     Active Substance: DIAZEPAM
     Indication: MUSCULOSKELETAL STIFFNESS
     Dosage: UNK
     Route: 065
  10. FRUSEMIDE [Concomitant]
     Active Substance: FUROSEMIDE
     Indication: LYMPHOEDEMA
     Dosage: 80 MILLIGRAM, DAILY
     Route: 048
     Dates: start: 20151112, end: 20151118
  11. LOPERAMIDE [Concomitant]
     Active Substance: LOPERAMIDE
     Indication: DIARRHOEA
     Dosage: UNK
     Route: 065
     Dates: start: 201804, end: 2019
  12. MORPHINE SULPHATE [Concomitant]
     Active Substance: MORPHINE SULFATE
     Dosage: 30 MILLIGRAM, DAILY
     Route: 048
     Dates: start: 201504
  13. VANCOMYCIN [Concomitant]
     Active Substance: VANCOMYCIN
     Indication: CELLULITIS
     Dosage: 1.5 MILLIGRAM, BID
     Route: 042
     Dates: start: 20200201, end: 20200206
  14. AMOXICILLIN. [Concomitant]
     Active Substance: AMOXICILLIN
     Indication: PRODUCT USED FOR UNKNOWN INDICATION
     Dosage: 1 GRAM, TID
     Route: 042
     Dates: start: 20191218, end: 20191219
  15. BLOOD, WHOLE [Concomitant]
     Active Substance: WHOLE BLOOD
     Dosage: 2 U
     Route: 042
     Dates: start: 20161022, end: 20161022
  16. BLOOD, WHOLE [Concomitant]
     Active Substance: WHOLE BLOOD
     Dosage: 3 UPRN (ASNEEDED)
     Route: 042
     Dates: start: 20200501, end: 20200501
  17. CLARITHROMYCIN. [Concomitant]
     Active Substance: CLARITHROMYCIN
     Dosage: 500 MILLIGRAM, 2 DOSE
     Route: 048
     Dates: start: 20190415
  18. CLARITHROMYCIN. [Concomitant]
     Active Substance: CLARITHROMYCIN
     Dosage: 500 MILLIGRAM, 2 DOSE
     Route: 048
     Dates: start: 20191111, end: 20191118
  19. CLARITHROMYCIN. [Concomitant]
     Active Substance: CLARITHROMYCIN
     Indication: SEPSIS
     Dosage: 500 MILLIGRAM, BID
     Route: 042
     Dates: start: 20190611, end: 20190611
  20. CO?AMOXICLAV [Concomitant]
     Active Substance: AMOXICILLIN\CLAVULANATE POTASSIUM
     Indication: CELLULITIS
     Dosage: UNK
     Route: 048
     Dates: start: 20190322, end: 2019
  21. DEXAMETHASONE. [Concomitant]
     Active Substance: DEXAMETHASONE
     Dosage: 4 MILLIGRAM, 2 DOSE
     Route: 048
     Dates: start: 20151020, end: 20151103
  22. FERROUS SULFATE. [Concomitant]
     Active Substance: FERROUS SULFATE
     Indication: ANAEMIA
     Dosage: 200 MILLIGRAM, DAILY
     Route: 048
     Dates: start: 20200804
  23. FLUCLOXACILLIN [Concomitant]
     Active Substance: FLUCLOXACILLIN
     Indication: CELLULITIS
     Dosage: 1 GRAM, UNK
     Route: 042
     Dates: start: 20020130, end: 20200202
  24. FUROSEMIDE. [Concomitant]
     Active Substance: FUROSEMIDE
     Indication: OEDEMA PERIPHERAL
     Dosage: 40 MILLIGRAM, BID
     Route: 048
     Dates: start: 20200626, end: 20201220
  25. FUROSEMIDE. [Concomitant]
     Active Substance: FUROSEMIDE
     Indication: OEDEMA
     Dosage: 20 MILLIGRAM, DAILY
     Route: 048
     Dates: start: 20191113, end: 20191116
  26. INHIXA [Concomitant]
     Active Substance: ENOXAPARIN SODIUM
     Dosage: 40 MILLIGRAM, BID
     Route: 058
     Dates: start: 20200728, end: 20200805
  27. LEVOTHYROXINE. [Concomitant]
     Active Substance: LEVOTHYROXINE
     Indication: HYPOTHYROIDISM
     Dosage: 50 MILLIGRAM, DAILY
     Route: 048
     Dates: start: 20200311
  28. MEROPENEM. [Concomitant]
     Active Substance: MEROPENEM
     Dosage: 1 GRAM, UNK
     Route: 042
     Dates: start: 20200622, end: 20200622
  29. MORPHINE SULPHATE [Concomitant]
     Active Substance: MORPHINE SULFATE
     Dosage: 60 MILLIGRAM, DAILY
     Route: 048
     Dates: start: 201504, end: 20160516
  30. TAZOCIN [Concomitant]
     Active Substance: PIPERACILLIN SODIUM\TAZOBACTAM SODIUM
     Indication: PNEUMONIA
     Dosage: 4.5 GRAM, 3 DOSE
     Route: 042
     Dates: start: 20191221, end: 20191227
  31. TRASTUZUMAB. [Suspect]
     Active Substance: TRASTUZUMAB
     Indication: BREAST CANCER METASTATIC
     Dosage: 600 MILLIGRAM, MONTHLY
     Route: 058
     Dates: start: 20150716, end: 20171222
  32. AMOXICILLIN. [Concomitant]
     Active Substance: AMOXICILLIN
     Dosage: 1 GRAM, 3 DOSE
     Route: 042
     Dates: start: 20201024, end: 20201026
  33. AMOXICILLIN. [Concomitant]
     Active Substance: AMOXICILLIN
     Indication: PNEUMONIA
     Dosage: 1 GRAM, TID
     Route: 048
     Dates: start: 20191219, end: 20191221
  34. BLOOD, WHOLE [Concomitant]
     Active Substance: WHOLE BLOOD
     Dosage: 2 U PRN (ASNEEDED)
     Route: 042
     Dates: start: 20160317, end: 20160317
  35. BUSCOPAN [Concomitant]
     Active Substance: BUTYLSCOPOLAMINE BROMIDE
     Indication: CONSTIPATION
     Dosage: 20 MILLIGRAM, DAILY
     Route: 048
     Dates: start: 20201205, end: 20201206
  36. CLARITHROMYCIN. [Concomitant]
     Active Substance: CLARITHROMYCIN
     Dosage: 500 MILLIGRAM, 2 DOSE
     Route: 048
     Dates: start: 20201024, end: 20201027
  37. COTRIMOXAZOLE [Concomitant]
     Active Substance: SULFAMETHOXAZOLE\TRIMETHOPRIM
     Indication: ABDOMINAL ABSCESS
     Dosage: UNK
     Route: 048
     Dates: start: 20181015, end: 20181022
  38. DOXYCYCLINE. [Concomitant]
     Active Substance: DOXYCYCLINE
     Indication: PYREXIA
     Dosage: 100 MILLIGRAM, DAILY
     Route: 048
     Dates: start: 20180815
  39. DOXYCYCLINE. [Concomitant]
     Active Substance: DOXYCYCLINE
     Indication: PNEUMONIA
     Dosage: 100 MILLIGRAM, DAILY
     Route: 048
     Dates: start: 20200728, end: 20200728
  40. FLUCLOXACILLIN [Concomitant]
     Active Substance: FLUCLOXACILLIN
     Indication: PYREXIA
     Dosage: 500 MILLIGRAM, UNK
     Route: 048
     Dates: start: 20180910, end: 20180912
  41. FLUCLOXACILLIN [Concomitant]
     Active Substance: FLUCLOXACILLIN
     Dosage: 2 GRAM, QID
     Route: 042
     Dates: start: 20201209, end: 20201217
  42. GABAPENTIN. [Concomitant]
     Active Substance: GABAPENTIN
     Indication: PRODUCT USED FOR UNKNOWN INDICATION
     Dosage: 1.2 GRAM, TID
     Route: 048
  43. INHIXA [Concomitant]
     Active Substance: ENOXAPARIN SODIUM
     Dosage: 40 MILLIGRAM, DAILY
     Route: 058
     Dates: start: 20200622, end: 20200623
  44. MAGNESIUM ASPARTATE [Concomitant]
     Active Substance: MAGNESIUM ASPARTATE
     Indication: PRODUCT USED FOR UNKNOWN INDICATION
     Dosage: UNK
     Route: 048
     Dates: start: 20201124, end: 20201125
  45. MEROPENEM. [Concomitant]
     Active Substance: MEROPENEM
     Indication: PNEUMONIA
     Dosage: 1 GRAM, UNK
     Route: 042
     Dates: start: 20201121, end: 20201121
  46. MEROPENEM. [Concomitant]
     Active Substance: MEROPENEM
     Dosage: 1 GRAM, TID
     Route: 042
     Dates: start: 20190610, end: 20190617
  47. MORPHINE SULPHATE [Concomitant]
     Active Substance: MORPHINE SULFATE
     Indication: BACK PAIN
     Dosage: 40 MILLIGRAM, UNK
     Route: 048
     Dates: start: 20150516, end: 201611
  48. PREDNISOLONE. [Concomitant]
     Active Substance: PREDNISOLONE
     Indication: PNEUMONIA
     Dosage: 30 MILLIGRAM, DAILY
     Route: 048
     Dates: start: 20200625, end: 20200629
  49. AMOXICILLIN. [Concomitant]
     Active Substance: AMOXICILLIN
     Dosage: 1 GRAM, 3 DOSE
     Route: 042
     Dates: start: 20201121, end: 20201221
  50. BLOOD, WHOLE [Concomitant]
     Active Substance: WHOLE BLOOD
     Dosage: 2 UPRN (AS NEEDED)
     Route: 042
     Dates: start: 20191112, end: 20191112
  51. BLOOD, WHOLE [Concomitant]
     Active Substance: WHOLE BLOOD
     Dosage: 3 UNITAS NEEDED
     Route: 042
     Dates: start: 20200613, end: 20200613
  52. CETIRIZINE [Concomitant]
     Active Substance: CETIRIZINE HYDROCHLORIDE
     Indication: PRODUCT USED FOR UNKNOWN INDICATION
     Dosage: 10 MILLIGRAM, DAILY
     Route: 054
     Dates: start: 20201121
  53. CLARITHROMYCIN. [Concomitant]
     Active Substance: CLARITHROMYCIN
     Indication: LOWER RESPIRATORY TRACT INFECTION
     Dosage: 500 MILLIGRAM, 2 DOSE
     Route: 048
     Dates: start: 20200622, end: 20200628
  54. DENOSUMAB [Concomitant]
     Active Substance: DENOSUMAB
     Indication: PRODUCT USED FOR UNKNOWN INDICATION
     Dosage: 120 MILLIGRAM, 1DOSE/4WEEKS
     Route: 058
     Dates: start: 20170604, end: 20170613
  55. DOXYCYCLINE. [Concomitant]
     Active Substance: DOXYCYCLINE
     Indication: CELLULITIS
     Dosage: 200 MILLIGRAM, DAILY
     Route: 048
     Dates: start: 20191223, end: 20191230
  56. DOXYCYCLINE. [Concomitant]
     Active Substance: DOXYCYCLINE
     Dosage: 200 MILLIGRAM, DAILY
     Route: 048
     Dates: start: 20190929, end: 20191005
  57. DOXYCYCLINE. [Concomitant]
     Active Substance: DOXYCYCLINE
     Indication: PRODUCT USED FOR UNKNOWN INDICATION
     Dosage: UNK
     Route: 065
  58. DIAZEPAM. [Concomitant]
     Active Substance: DIAZEPAM
     Indication: BACK PAIN
     Dosage: 2 MILLIGRAM, TID
     Route: 048
     Dates: start: 20180105
  59. FUROSEMIDE. [Concomitant]
     Active Substance: FUROSEMIDE
     Indication: PRODUCT USED FOR UNKNOWN INDICATION
     Dosage: 40 MILLIGRAM, DAILY
     Route: 042
     Dates: start: 20200622, end: 20200623
  60. MEROPENEM. [Concomitant]
     Active Substance: MEROPENEM
     Dosage: 1 GRAM, UNK
     Route: 042
     Dates: start: 20200728, end: 20200728
  61. MORPHINE SULPHATE [Concomitant]
     Active Substance: MORPHINE SULFATE
     Indication: PRODUCT USED FOR UNKNOWN INDICATION
     Dosage: 10 MILLIGRAM, UNK
     Route: 048
     Dates: start: 20171224
  62. TAZOCIN [Concomitant]
     Active Substance: PIPERACILLIN SODIUM\TAZOBACTAM SODIUM
     Indication: CELLULITIS
     Dosage: 4.5 GRAM, TID
     Route: 042
     Dates: start: 20200202, end: 20200206
  63. VITAMIN D3 [Concomitant]
     Active Substance: CHOLECALCIFEROL
     Indication: PRODUCT USED FOR UNKNOWN INDICATION
     Dosage: 400 INTERNATIONAL UNIT, DAILY
     Route: 048
     Dates: start: 20150827
  64. ZANAMIVIR [Concomitant]
     Active Substance: ZANAMIVIR
     Indication: PYREXIA
     Dosage: 10 MILLIGRAM, BID
     Route: 065
     Dates: start: 20191218, end: 20191219
  65. LETROZOLE. [Suspect]
     Active Substance: LETROZOLE
     Indication: BREAST CANCER METASTATIC
     Dosage: 2.5 MILLIGRAM, DAILY
     Route: 048
     Dates: start: 201507, end: 20170427
  66. TRASTUZUMAB EMTANSINE [Suspect]
     Active Substance: ADO-TRASTUZUMAB EMTANSINE
     Indication: BREAST CANCER METASTATIC
     Dosage: 420 MILLIGRAM, 1DOSE/4WEEKS
     Route: 042
     Dates: start: 20180118
  67. AMITRIPTYLINE [Concomitant]
     Active Substance: AMITRIPTYLINE
     Indication: HERPES ZOSTER
     Dosage: 10 MILLIGRAM, DAILY
     Route: 048
     Dates: start: 20160727, end: 20160809
  68. AMOXICILLIN. [Concomitant]
     Active Substance: AMOXICILLIN
     Indication: LOWER RESPIRATORY TRACT INFECTION
     Dosage: 500 MILLIGRAM, 3 DOSE
     Route: 048
     Dates: start: 20201122, end: 20201127
  69. AMOXICILLIN. [Concomitant]
     Active Substance: AMOXICILLIN
     Dosage: 1000 MILLIGRAM, 3 DOSE
     Route: 048
     Dates: start: 20180701, end: 20180711
  70. BLOOD, WHOLE [Concomitant]
     Active Substance: WHOLE BLOOD
     Dosage: UNK
     Route: 042
     Dates: start: 20170906, end: 20170906
  71. CHLORHEXIDINE [Concomitant]
     Active Substance: CHLORHEXIDINE
     Indication: STOMATITIS
     Dosage: 10 MILLILITER, QID
     Route: 061
     Dates: start: 20201127
  72. CLARITHROMYCIN. [Concomitant]
     Active Substance: CLARITHROMYCIN
     Dosage: 500 MILLIGRAM, 2 DOSE
     Route: 048
     Dates: start: 20191219, end: 20191221
  73. CO?AMOXICLAV [Concomitant]
     Active Substance: AMOXICILLIN\CLAVULANATE POTASSIUM
     Indication: PYREXIA
     Dosage: 625 MILLIGRAM, TID
     Route: 048
     Dates: start: 20190205, end: 20190206
  74. DEXAMETHASONE. [Concomitant]
     Active Substance: DEXAMETHASONE
     Indication: COVID-19
     Dosage: 4 MILLIGRAM, BID
     Route: 048
     Dates: start: 20151104, end: 20151110
  75. DEXAMETHASONE. [Concomitant]
     Active Substance: DEXAMETHASONE
     Dosage: 1 MILLIGRAM, UNK
     Route: 048
     Dates: start: 20151125, end: 20151202
  76. FUROSEMIDE. [Concomitant]
     Active Substance: FUROSEMIDE
     Dosage: 400 MILLIGRAM, BID
     Route: 042
     Dates: start: 20200623, end: 20200626
  77. HYOSCINE BUTYLBROMIDE [Concomitant]
     Active Substance: BUTYLSCOPOLAMINE BROMIDE
     Indication: PRODUCT USED FOR UNKNOWN INDICATION
     Dosage: 10 MILLIGRAM, TID
     Route: 048
     Dates: start: 20181222
  78. INHIXA [Concomitant]
     Active Substance: ENOXAPARIN SODIUM
     Dosage: 40 MILLIGRAM, DAILY
     Route: 058
     Dates: start: 20201121, end: 20201203
  79. INHIXA [Concomitant]
     Active Substance: ENOXAPARIN SODIUM
     Dosage: 40 MILLIGRAM, DAILY
     Route: 058
     Dates: start: 20190610, end: 20190623
  80. LINEZOLID. [Concomitant]
     Active Substance: LINEZOLID
     Indication: CELLULITIS
     Dosage: 600 MILLIGRAM, BID
     Route: 042
     Dates: start: 20190611, end: 20190621
  81. MEROPENEM. [Concomitant]
     Active Substance: MEROPENEM
     Dosage: 1 GRAM, UNK
     Route: 042
     Dates: start: 20190205, end: 20190205
  82. MORPHINE SULPHATE [Concomitant]
     Active Substance: MORPHINE SULFATE
     Dosage: UNK
  83. PARACETAMOL [Concomitant]
     Active Substance: ACETAMINOPHEN
     Indication: PRODUCT USED FOR UNKNOWN INDICATION
     Dosage: PRN (ASNEEDED)
     Route: 048
     Dates: start: 201504
  84. ZOMETA [Concomitant]
     Active Substance: ZOLEDRONIC ACID
     Indication: PRODUCT USED FOR UNKNOWN INDICATION
     Dosage: 4 MILLIGRAM, UNK
     Route: 042
     Dates: start: 20150827, end: 20160314
  85. CIPROFLOXACIN. [Concomitant]
     Active Substance: CIPROFLOXACIN
     Indication: PYREXIA
     Dosage: 750 MILLIGRAM, BID
     Route: 048
     Dates: start: 20190205, end: 20190206
  86. CITALOPRAM [Concomitant]
     Active Substance: CITALOPRAM HYDROBROMIDE
     Indication: PRODUCT USED FOR UNKNOWN INDICATION
     Dosage: 40 MILLIGRAM, DAILY
     Route: 048
     Dates: start: 2005
  87. CLARITHROMYCIN. [Concomitant]
     Active Substance: CLARITHROMYCIN
     Dosage: 500 MILLIGRAM, 2 DOSE
     Route: 048
     Dates: start: 20180701, end: 20180711
  88. CLINDAMYCIN. [Concomitant]
     Active Substance: CLINDAMYCIN
     Dosage: 1.2 GRAM, TID
     Route: 042
     Dates: start: 20200206, end: 20200212
  89. FLUCLOXACILLIN [Concomitant]
     Active Substance: FLUCLOXACILLIN
     Indication: WOUND INFECTION
     Dosage: 1 GRAM, UNK
     Route: 042
     Dates: start: 20180912, end: 20180915
  90. GABAPENTIN. [Concomitant]
     Active Substance: GABAPENTIN
     Dosage: 300 MILLIGRAM, 3 DOSE
     Route: 048
     Dates: start: 20151231
  91. INHIXA [Concomitant]
     Active Substance: ENOXAPARIN SODIUM
     Indication: THROMBOLYSIS
     Dosage: 40 MILLIGRAM, BID
     Route: 058
     Dates: start: 20201204, end: 20201210
  92. LINEZOLID. [Concomitant]
     Active Substance: LINEZOLID
     Indication: PYREXIA
     Dosage: 600 MILLIGRAM, BID
     Route: 048
     Dates: start: 20181223, end: 20181227
  93. LISINOPRIL. [Concomitant]
     Active Substance: LISINOPRIL
     Indication: PRODUCT USED FOR UNKNOWN INDICATION
     Dosage: 2.5 MILLIGRAM, TID
     Route: 048
     Dates: start: 20161110
  94. MEROPENEM. [Concomitant]
     Active Substance: MEROPENEM
     Indication: PYREXIA
     Dosage: 1 GRAM, TID
     Route: 042
     Dates: start: 20180813, end: 20180814
  95. METRONIDAZOLE. [Concomitant]
     Active Substance: METRONIDAZOLE
     Indication: OSTEOMYELITIS
     Dosage: UNK
     Route: 048
     Dates: start: 20170701, end: 20170708
  96. METRONIDAZOLE. [Concomitant]
     Active Substance: METRONIDAZOLE
     Indication: PYREXIA
     Dosage: 400 MILLIGRAM, UNK
     Route: 048
     Dates: start: 20180915, end: 20180921
  97. NORMAL SALINE [Concomitant]
     Active Substance: SODIUM CHLORIDE
     Indication: PRODUCT USED FOR UNKNOWN INDICATION
     Dosage: 1000 MILLILITER, UNK
     Route: 042
     Dates: start: 20201121, end: 20201122
  98. ACIDEX [Concomitant]
     Indication: DYSPEPSIA
     Dosage: AS NEEDED
     Route: 048
     Dates: start: 20201123, end: 20201209
  99. PROMETHAZINE HYDROCHLORIDE. [Concomitant]
     Active Substance: PROMETHAZINE HYDROCHLORIDE
     Indication: PRODUCT USED FOR UNKNOWN INDICATION
     Dosage: 50 MILLIGRAM, DAILY
     Route: 048
  100. TEICOPLANIN [Concomitant]
     Active Substance: TEICOPLANIN
     Indication: CELLULITIS
     Dosage: 800 MILLIGRAM, BID
     Route: 042
     Dates: start: 20200728, end: 20200803
  101. TINZAPARIN [Concomitant]
     Active Substance: TINZAPARIN
     Dosage: 22000 INTERNATIONAL UNIT, DAILY
     Route: 058
     Dates: start: 20200624, end: 20200624
  102. EXEMESTANE. [Suspect]
     Active Substance: EXEMESTANE
     Indication: BREAST CANCER METASTATIC
     Dosage: 25 MILLIGRAM, DAILY
     Route: 048
     Dates: start: 20170428, end: 20180110
  103. AMOXICILLIN. [Concomitant]
     Active Substance: AMOXICILLIN
     Dosage: 1 GRAM, 3 DOSE
     Route: 048
     Dates: start: 20200626, end: 20200628
  104. AMOXICILLIN. [Concomitant]
     Active Substance: AMOXICILLIN
     Dosage: 500 MILLIGRAM, TID
     Route: 048
     Dates: start: 20201026, end: 20201027
  105. AMOXICILLIN. [Concomitant]
     Active Substance: AMOXICILLIN
     Dosage: UNK
  106. BENZYDAMINE [Concomitant]
     Active Substance: BENZYDAMINE
     Indication: STOMATITIS
     Dosage: 10 MILLILITER, QID
     Route: 061
     Dates: start: 20201121
  107. BLOOD, WHOLE [Concomitant]
     Active Substance: WHOLE BLOOD
     Dosage: 2 U
     Route: 042
     Dates: start: 20190611, end: 20190611
  108. HYDROCORTISONE. [Concomitant]
     Active Substance: HYDROCORTISONE
     Indication: PRODUCT USED FOR UNKNOWN INDICATION
     Dosage: UNK
     Route: 065
  109. DEXAMETHASONE. [Concomitant]
     Active Substance: DEXAMETHASONE
     Dosage: 8 MILLIGRAM, 2 DOSE
     Route: 048
     Dates: start: 20151008, end: 20151020
  110. DOXYCYCLINE. [Concomitant]
     Active Substance: DOXYCYCLINE
     Dosage: 100 MILLIGRAM, DAILY
     Route: 048
     Dates: start: 20170112, end: 20170118
  111. INHIXA [Concomitant]
     Active Substance: ENOXAPARIN SODIUM
     Dosage: 40 MILLIGRAM, DAILY
     Route: 058
     Dates: start: 20200625, end: 20200625
  112. LANSOPRAZOLE. [Concomitant]
     Active Substance: LANSOPRAZOLE
     Indication: PRODUCT USED FOR UNKNOWN INDICATION
     Dosage: 15 MILLIGRAM, DAILY
     Route: 048
     Dates: start: 2001
  113. LINEZOLID. [Concomitant]
     Active Substance: LINEZOLID
     Dosage: 600 MILLIGRAM, 2 DOSE
     Route: 042
     Dates: start: 20200206, end: 20200212
  114. NAPROXEN. [Concomitant]
     Active Substance: NAPROXEN
     Indication: PRODUCT USED FOR UNKNOWN INDICATION
     Dosage: 250 MILLIGRAM, BID
     Route: 048
  115. ACYCLOVIR. [Concomitant]
     Active Substance: ACYCLOVIR
     Indication: ORAL HERPES
     Dosage: 800 MILLIGRAM, 5ID
     Route: 048
     Dates: start: 20160727, end: 20160807
  116. AMOXICILLIN. [Concomitant]
     Active Substance: AMOXICILLIN
     Dosage: 1 GRAM, 3 DOSE
     Route: 042
     Dates: start: 20200622, end: 20200626
  117. AMOXICILLIN. [Concomitant]
     Active Substance: AMOXICILLIN
     Dosage: 1 GRAM, 3 DOSE
     Route: 042
     Dates: start: 20191111, end: 20191115
  118. AMOXICILLIN. [Concomitant]
     Active Substance: AMOXICILLIN
     Indication: OSTEOMYELITIS
     Dosage: UNK
     Route: 048
     Dates: start: 20170701, end: 20170706
  119. AMOXICILLIN. [Concomitant]
     Active Substance: AMOXICILLIN
     Dosage: 500 MILLIGRAM, 3 DOSE
     Route: 048
     Dates: start: 20190414
  120. AMOXICILLIN. [Concomitant]
     Active Substance: AMOXICILLIN
     Dosage: 1 GRAM, 3 DOSE
     Route: 048
     Dates: start: 20191115, end: 20191118
  121. BLOOD, WHOLE [Concomitant]
     Active Substance: WHOLE BLOOD
     Indication: ANAEMIA
     Dosage: 2 UNITPRN (ASNEEDED)
     Route: 042
     Dates: start: 20181022, end: 20181022
  122. BLOOD, WHOLE [Concomitant]
     Active Substance: WHOLE BLOOD
     Dosage: 3 U
     Route: 042
     Dates: start: 20200718, end: 20200718
  123. CLARITHROMYCIN. [Concomitant]
     Active Substance: CLARITHROMYCIN
     Dosage: 500 MILLIGRAM, 2 DOSE
     Route: 048
     Dates: start: 20200728, end: 20200803
  124. DEXAMETHASONE. [Concomitant]
     Active Substance: DEXAMETHASONE
     Dosage: 1 MILLIGRAM, 2 DOSE
     Route: 048
     Dates: start: 20151118, end: 20151124
  125. DEXAMETHASONE. [Concomitant]
     Active Substance: DEXAMETHASONE
     Dosage: 2 MILLIGRAM, 2 DOSE
     Route: 048
     Dates: start: 20151111, end: 20151117
  126. FLUCLOXACILLIN [Concomitant]
     Active Substance: FLUCLOXACILLIN
     Indication: PARONYCHIA
     Dosage: 500 MILLIGRAM, UNK
     Route: 048
     Dates: start: 20161110, end: 20161117
  127. FLUCLOXACILLIN [Concomitant]
     Active Substance: FLUCLOXACILLIN
     Dosage: 500 MILLIGRAM, UNK
     Route: 048
     Dates: start: 20180915, end: 20180921
  128. FUROSEMIDE. [Concomitant]
     Active Substance: FUROSEMIDE
     Dosage: 40 MILLIGRAM, DAILY
     Route: 048
     Dates: start: 20191117
  129. LANSOPRAZOLE. [Concomitant]
     Active Substance: LANSOPRAZOLE
     Dosage: 30 MILLIGRAM, DAILY
     Route: 048
  130. MACROGOL [Concomitant]
     Active Substance: POLYETHYLENE GLYCOLS
     Indication: CONSTIPATION
     Dosage: UNK
     Route: 048
     Dates: start: 20201122, end: 20201126
  131. MAGNESIUM ASPARTATE [Concomitant]
     Active Substance: MAGNESIUM ASPARTATE
     Indication: HYPOMAGNESAEMIA
     Dosage: 6.5 GRAM, BID
     Route: 048
     Dates: start: 20191111
  132. MEROPENEM. [Concomitant]
     Active Substance: MEROPENEM
     Indication: SEPSIS
     Dosage: 1 GRAM, 3/WEEK
     Route: 042
     Dates: start: 20181222, end: 20181227
  133. METRONIDAZOLE. [Concomitant]
     Active Substance: METRONIDAZOLE
     Indication: WOUND INFECTION
     Dosage: 400 MILLIGRAM, TID
     Route: 048
     Dates: start: 20201209, end: 20201217
  134. PHOSPHATE SANDOZ EFFERVESCENT [Concomitant]
     Indication: HYPOPHOSPHATAEMIA
     Route: 048
     Dates: start: 20201209, end: 20201216
  135. RIFAMPICIN [Concomitant]
     Active Substance: RIFAMPIN
     Indication: CELLULITIS
     Dosage: 300 MILLIGRAM, BID
     Route: 048
     Dates: start: 20200212, end: 20200212
  136. TINZAPARIN [Concomitant]
     Active Substance: TINZAPARIN
     Indication: DEEP VEIN THROMBOSIS
     Dosage: 20000 U
     Route: 058
     Dates: start: 20190928
  137. TRIMETHOPRIM. [Concomitant]
     Active Substance: TRIMETHOPRIM
     Indication: URINARY TRACT INFECTION
     Dosage: 200 MILLIGRAM, BID
     Route: 048
     Dates: start: 20201207, end: 20201210
  138. ZOMORPH [Concomitant]
     Active Substance: MORPHINE SULFATE
     Indication: PRODUCT USED FOR UNKNOWN INDICATION
     Dosage: 30 MILLIGRAM, BID
     Route: 048
     Dates: start: 201611

REACTIONS (1)
  - Hypokalaemia [Recovered/Resolved]

NARRATIVE: CASE EVENT DATE: 20201217
